FAERS Safety Report 13273699 (Version 1)
Quarter: 2017Q1

REPORT INFORMATION
  Report Type: Other
  Country: GB (occurrence: GB)
  Receive Date: 20170227
  Receipt Date: 20170227
  Transmission Date: 20170428
  Serious: Yes (Hospitalization)
  Sender: FDA-Public Use
  Company Number: GB-VELOXIS PHARMACEUTICALS-1063618

PATIENT
  Age: 56 Year
  Sex: Male

DRUGS (6)
  1. ENVARSUS XR [Suspect]
     Active Substance: TACROLIMUS
     Indication: IMMUNE RECOVERY UVEITIS
  2. RITONAVIR. [Suspect]
     Active Substance: RITONAVIR
  3. RILPIVIRINE [Suspect]
     Active Substance: RILPIVIRINE
  4. DARUNAVIR [Suspect]
     Active Substance: DARUNAVIR
  5. DOLUTEGRAVIR [Suspect]
     Active Substance: DOLUTEGRAVIR
  6. EVIPLERA [Suspect]
     Active Substance: EMTRICITABINE\RILPIVIRINE\TENOFOVIR DISOPROXIL FUMARATE

REACTIONS (7)
  - Neurotoxicity [Recovered/Resolved]
  - Renal impairment [Recovered/Resolved]
  - Drug interaction [None]
  - Acute kidney injury [Recovered/Resolved]
  - Nephropathy toxic [Recovered/Resolved]
  - Diarrhoea [Recovered/Resolved]
  - Off label use [None]
